FAERS Safety Report 16444662 (Version 1)
Quarter: 2019Q3

REPORT INFORMATION
  Report Type: Spontaneous
  Country: US (occurrence: US)
  Receive Date: 20190618
  Receipt Date: 20190618
  Transmission Date: 20191004
  Serious: Yes (Hospitalization)
  Sender: FDA-Public Use
  Company Number: None

PATIENT
  Sex: Female

DRUGS (7)
  1. FORTEO [Suspect]
     Active Substance: TERIPARATIDE
     Indication: OSTEOPOROSIS
     Route: 058
     Dates: start: 20171120
  2. LEVOTHYROXINE 50MCG TABLETS [Concomitant]
     Dates: start: 20190517
  3. MELOXICAM 7.5MG TABLETS [Concomitant]
     Active Substance: MELOXICAM
     Dates: start: 20190224
  4. GABAPENTIN 100MG CAPSULES [Concomitant]
     Active Substance: GABAPENTIN
     Dates: start: 20190223
  5. ROSUVASTATIN 10 MG TABLETS [Concomitant]
     Dates: start: 20190524
  6. SPIRIVA CAP HANDHALER [Concomitant]
     Dates: start: 20190204
  7. BREO ELLIPTA INHALER 200-25 [Concomitant]
     Dates: start: 20190517

REACTIONS (2)
  - Therapy cessation [None]
  - Malaise [None]
